FAERS Safety Report 16819808 (Version 1)
Quarter: 2019Q3

REPORT INFORMATION
  Report Type: Spontaneous
  Country: CN (occurrence: CN)
  Receive Date: 20190917
  Receipt Date: 20190917
  Transmission Date: 20191005
  Serious: Yes (Other)
  Sender: FDA-Public Use
  Company Number: CN-BAXTER-2019BAX018074

PATIENT
  Age: 46 Year
  Sex: Female
  Weight: 49 kg

DRUGS (12)
  1. 0.9% SODIUM CHLORIDE INJECTION [Suspect]
     Active Substance: SODIUM CHLORIDE
     Dosage: ENDOXAN + NS, DOSE RE-INTRODUCED
     Route: 042
  2. PHARMORUBICIN RD [Suspect]
     Active Substance: EPIRUBICIN
     Dosage: PHARMORUBICIN RD + NS 100 ML, SECOND CHEMOTHERAPY
     Route: 041
     Dates: start: 20190817, end: 20190817
  3. 0.9% SODIUM CHLORIDE INJECTION [Suspect]
     Active Substance: SODIUM CHLORIDE
     Dosage: PHARMORUBICIN RD 118 MG + NS, SECOND CHEMOTHERAPY
     Route: 041
     Dates: start: 20190817, end: 20190817
  4. ENDOXAN [Suspect]
     Active Substance: CYCLOPHOSPHAMIDE
     Dosage: ENDOXAN + NS 40 ML, SECOND CHEMOTHERAPY
     Route: 042
     Dates: start: 20190817, end: 20190817
  5. PHARMORUBICIN RD [Suspect]
     Active Substance: EPIRUBICIN
     Dosage: PHARMORUBICIN RD + NS, DOSE RE-INTRODUCED
     Route: 041
  6. 0.9% SODIUM CHLORIDE INJECTION [Suspect]
     Active Substance: SODIUM CHLORIDE
     Dosage: PHARMORUBICIN RD + NS, FIRST CHEMOTHERAPY
     Route: 041
  7. ENDOXAN [Suspect]
     Active Substance: CYCLOPHOSPHAMIDE
     Indication: BREAST CANCER FEMALE
     Dosage: FIRST CHEMOTHERAPY, ENDOXAN + NS
     Route: 042
  8. PHARMORUBICIN RD [Suspect]
     Active Substance: EPIRUBICIN
     Indication: BREAST CANCER FEMALE
     Dosage: PHARMORUBICIN RD + NS, FIRST CHEMOTHERAPY
     Route: 041
  9. ENDOXAN [Suspect]
     Active Substance: CYCLOPHOSPHAMIDE
     Dosage: ENDOXAN + NS, DOSE RE-INTRODUCED
     Route: 042
  10. 0.9% SODIUM CHLORIDE INJECTION [Suspect]
     Active Substance: SODIUM CHLORIDE
     Indication: MEDICATION DILUTION
     Dosage: ENDOXAN + NS, FIRST CHEMOTHERAPY
     Route: 042
  11. 0.9% SODIUM CHLORIDE INJECTION [Suspect]
     Active Substance: SODIUM CHLORIDE
     Dosage: ENDOXAN 800 MG+ NS, SECOND CHEMOTHERAPY
     Route: 042
     Dates: start: 20190817, end: 20190817
  12. 0.9% SODIUM CHLORIDE INJECTION [Suspect]
     Active Substance: SODIUM CHLORIDE
     Dosage: PHARMORUBICIN RD + NS, DOSE RE-INTRODUCED
     Route: 041

REACTIONS (2)
  - Leukopenia [Recovered/Resolved]
  - Agranulocytosis [Recovered/Resolved]

NARRATIVE: CASE EVENT DATE: 20190823
